FAERS Safety Report 5259860-7 (Version None)
Quarter: 2007Q1

REPORT INFORMATION
  Report Type: 
  Country: None (occurrence: None)
  Receive Date: 20070309
  Receipt Date: 20070228
  Transmission Date: 20070707
  Serious: Yes (Death, Disabling)
  Sender: FDA-Public Use
  Company Number: JP-AVENTIS-200619505GDDC

PATIENT
  Age: 72 Year
  Sex: Male

DRUGS (5)
  1. RIFADIN [Suspect]
     Indication: TUBERCULOSIS
     Route: 048
     Dates: start: 20060808, end: 20060822
  2. ISCOTIN [Concomitant]
  3. PYDOXAL [Concomitant]
  4. METHYCOBAL                         /00056201/ [Concomitant]
  5. LEVOFLOXACIN [Concomitant]

REACTIONS (4)
  - DEATH [None]
  - HAEMOLYTIC ANAEMIA [None]
  - HYPERBILIRUBINAEMIA [None]
  - RENAL FAILURE [None]
